FAERS Safety Report 10010819 (Version 1)
Quarter: 2014Q1

REPORT INFORMATION
  Report Type: Spontaneous
  Country: US (occurrence: US)
  Receive Date: 20140314
  Receipt Date: 20140314
  Transmission Date: 20141002
  Serious: No
  Sender: FDA-Public Use
  Company Number: US-009507513-1403USA004385

PATIENT
  Age: 18 Year
  Sex: Male

DRUGS (2)
  1. DULERA [Suspect]
     Indication: ASTHMA
     Dosage: 2 PUFFS, TWICE DAILY
     Route: 055
     Dates: start: 201203
  2. PROAIR (ALBUTEROL SULFATE) [Concomitant]
     Dosage: UNK, AS NEEDED

REACTIONS (4)
  - Chest discomfort [Not Recovered/Not Resolved]
  - Cough [Not Recovered/Not Resolved]
  - Drug dose omission [Unknown]
  - Product container issue [Unknown]
